FAERS Safety Report 7117342-1 (Version None)
Quarter: 2010Q4

REPORT INFORMATION
  Report Type: 
  Country: None (occurrence: None)
  Receive Date: 20101122
  Receipt Date: 20101115
  Transmission Date: 20110411
  Serious: Yes (Death, Other)
  Sender: FDA-Public Use
  Company Number: JP-ROCHE-742997

PATIENT
  Sex: Female
  Weight: 64 kg

DRUGS (3)
  1. AVASTIN [Suspect]
     Indication: LUNG ADENOCARCINOMA
     Dosage: NOTE: DOSAGE IS UNCERTAIN.
     Route: 041
     Dates: start: 20101109, end: 20101109
  2. CARBOPLATIN [Suspect]
     Dosage: NOTE: DOSAGE IS UNCERTAIN.
     Route: 041
     Dates: start: 20101109, end: 20101109
  3. PACLITAXEL [Suspect]
     Dosage: NOTE: DOSAGE IS UNCERTAIN.
     Route: 041
     Dates: start: 20101109, end: 20101109

REACTIONS (3)
  - DEATH [None]
  - DYSPNOEA [None]
  - PULMONARY ALVEOLAR HAEMORRHAGE [None]
